FAERS Safety Report 6809618-X (Version None)
Quarter: 2010Q2

REPORT INFORMATION
  Report Type: 
  Country: None (occurrence: None)
  Receive Date: 20100625
  Receipt Date: 20090131
  Transmission Date: 20101027
  Serious: Yes (Death)
  Sender: FDA-Public Use
  Company Number: INDAB-10-0293

PATIENT
  Age: 44 Year
  Sex: Female

DRUGS (1)
  1. ABRAXANE [Suspect]
     Indication: BREAST CANCER
     Dosage: (260 MG/M2)
     Dates: start: 20090108, end: 20090801

REACTIONS (4)
  - ESCHERICHIA SEPSIS [None]
  - GINGIVAL BLEEDING [None]
  - PAIN [None]
  - PLATELET COUNT DECREASED [None]
